FAERS Safety Report 19779968 (Version 1)
Quarter: 2021Q3

REPORT INFORMATION
  Report Type: Report from Study
  Country: US (occurrence: US)
  Receive Date: 20210902
  Receipt Date: 20210902
  Transmission Date: 20211014
  Serious: Yes (Hospitalization, Other)
  Sender: FDA-Public Use
  Company Number: US-GILEAD-2021-0546565

PATIENT
  Age: 42 Year
  Sex: Male

DRUGS (1)
  1. EFAVIRENZ/EMTRICITABINE/TENOFOVIR DISOPROXIL FUMARATE [Suspect]
     Active Substance: EFAVIRENZ\EMTRICITABINE\TENOFOVIR DISOPROXIL FUMARATE
     Indication: HIV INFECTION
     Dosage: UNK, QD
     Route: 048
     Dates: start: 201309, end: 201411

REACTIONS (7)
  - Transfusion [Unknown]
  - Acute kidney injury [Unknown]
  - Sleep terror [Recovered/Resolved]
  - Pain [Not Recovered/Not Resolved]
  - Infection [Unknown]
  - Renal disorder [Not Recovered/Not Resolved]
  - Tachyphrenia [Unknown]
